FAERS Safety Report 22590456 (Version 1)
Quarter: 2023Q2

REPORT INFORMATION
  Report Type: Spontaneous
  Country: GB (occurrence: GB)
  Receive Date: 20230612
  Receipt Date: 20230612
  Transmission Date: 20230721
  Serious: Yes (Other)
  Sender: FDA-Public Use
  Company Number: None

PATIENT

DRUGS (1)
  1. DICLOFENAC DIETHYLAMINE [Suspect]
     Active Substance: DICLOFENAC DIETHYLAMINE
     Indication: Back injury
     Dosage: 4 MG
     Dates: start: 20230601, end: 20230603

REACTIONS (5)
  - Skin irritation [Not Recovered/Not Resolved]
  - Pruritus [Unknown]
  - Dry eye [Unknown]
  - Wheezing [Unknown]
  - Feeling hot [Unknown]

NARRATIVE: CASE EVENT DATE: 20230603
